FAERS Safety Report 9125957 (Version 4)
Quarter: 2014Q1

REPORT INFORMATION
  Report Type: Spontaneous
  Country: US (occurrence: US)
  Receive Date: 20130228
  Receipt Date: 20140130
  Transmission Date: 20141002
  Serious: Yes (Hospitalization, Other)
  Sender: FDA-Public Use
  Company Number: US-009507513-1302USA009006

PATIENT
  Sex: Male

DRUGS (4)
  1. PEGINTRON [Suspect]
     Indication: HEPATITIS C
     Dosage: UNK
     Dates: start: 20090101, end: 20090201
  2. PEGINTRON [Suspect]
     Dosage: UNK
     Dates: start: 20130118, end: 20130620
  3. REBETOL [Suspect]
     Indication: HEPATITIS C
     Dosage: UNK
     Route: 048
     Dates: start: 20090101, end: 20090201
  4. REBETOL [Suspect]
     Dosage: UNK
     Dates: start: 20130118, end: 20130620

REACTIONS (12)
  - Ileus [Unknown]
  - Ileus [Unknown]
  - Abdominal pain [Unknown]
  - Leukopenia [Unknown]
  - Leukopenia [Unknown]
  - White blood cell count decreased [Unknown]
  - Drug ineffective [Unknown]
  - Therapeutic response decreased [Unknown]
  - Drug ineffective [Unknown]
  - Therapeutic response decreased [Unknown]
  - Alopecia [Unknown]
  - White blood cell count decreased [Unknown]
